FAERS Safety Report 7688483-5 (Version None)
Quarter: 2011Q3

REPORT INFORMATION
  Report Type: 
  Country: None (occurrence: None)
  Receive Date: 20110817
  Receipt Date: 20110810
  Transmission Date: 20111222
  Serious: Yes (Other)
  Sender: FDA-Public Use
  Company Number: US-ROCHE-796758

PATIENT
  Age: 56 Year
  Sex: Female
  Weight: 72.3 kg

DRUGS (3)
  1. CISPLATIN [Suspect]
     Indication: OVARIAN EPITHELIAL CANCER
     Dosage: ON DAY 2
     Route: 033
     Dates: start: 20100621
  2. BEVACIZUMAB [Suspect]
     Indication: OVARIAN EPITHELIAL CANCER
     Dosage: LAST ADMINISTERED DATE: 21 JUNE 2011, TOTAL DOSE: 1125 MG
     Route: 042
     Dates: start: 20100621
  3. PACLITAXEL [Suspect]
     Indication: OVARIAN EPITHELIAL CANCER
     Dosage: OVER 3 HOURS ON DAY 1
     Route: 042
     Dates: start: 20100621

REACTIONS (1)
  - BLOOD POTASSIUM INCREASED [None]
